FAERS Safety Report 21767785 (Version 5)
Quarter: 2023Q1

REPORT INFORMATION
  Report Type: Spontaneous
  Country: FR (occurrence: FR)
  Receive Date: 20221222
  Receipt Date: 20230123
  Transmission Date: 20230418
  Serious: Yes (Life-Threatening, Hospitalization)
  Sender: FDA-Public Use
  Company Number: None

PATIENT
  Age: 2 Year
  Sex: Female
  Weight: 10 kg

DRUGS (3)
  1. FOSPHENYTOIN SODIUM [Suspect]
     Active Substance: FOSPHENYTOIN SODIUM
     Indication: Seizure
     Dosage: 1500 MG
     Dates: start: 20221202, end: 20221202
  2. VALIUM [Concomitant]
     Active Substance: DIAZEPAM
     Indication: Seizure
     Dosage: 5 MG
     Route: 054
     Dates: start: 20221202, end: 20221202
  3. RIVOTRIL [Concomitant]
     Active Substance: CLONAZEPAM
     Indication: Seizure
     Dosage: 0.5 MG (0.05 MG/KG)
     Route: 042
     Dates: start: 20221202, end: 20221202

REACTIONS (9)
  - Off label use [Unknown]
  - Product dispensing error [Recovering/Resolving]
  - Product preparation error [Recovering/Resolving]
  - Accidental overdose [Recovering/Resolving]
  - Febrile status epilepticus [Recovering/Resolving]
  - Otitis media acute [Recovering/Resolving]
  - Coma [Recovering/Resolving]
  - Nervous system disorder [Recovering/Resolving]
  - Encephalopathy [Recovering/Resolving]

NARRATIVE: CASE EVENT DATE: 20221201
